FAERS Safety Report 9377693 (Version 1)
Quarter: 2013Q2

REPORT INFORMATION
  Report Type: Spontaneous
  Country: US (occurrence: None)
  Receive Date: 20130625
  Receipt Date: 20130625
  Transmission Date: 20140414
  Serious: Yes (Hospitalization)
  Sender: FDA-Public Use
  Company Number: 2013US001799

PATIENT
  Age: 64 Year
  Sex: Female

DRUGS (4)
  1. ICLUSIG [Suspect]
     Indication: ACUTE MYELOID LEUKAEMIA
     Route: 048
  2. METOLAZONE (METOLAZONE) [Concomitant]
  3. LEVITRA (VARDENAFIL HYDROCHLORIDE) [Concomitant]
  4. LEVOTHYROXINE (LEVOTHYROXINE) [Concomitant]

REACTIONS (3)
  - Burning sensation [None]
  - Pancreatitis [None]
  - Rash [None]
